FAERS Safety Report 10479739 (Version 1)
Quarter: 2014Q3

REPORT INFORMATION
  Report Type: Spontaneous
  Country: IT (occurrence: IT)
  Receive Date: 20140927
  Receipt Date: 20140927
  Transmission Date: 20150326
  Serious: Yes (Hospitalization)
  Sender: FDA-Public Use
  Company Number: PHHY2014IT121876

PATIENT
  Age: 79 Year
  Sex: Male

DRUGS (11)
  1. SPASMEX [Concomitant]
     Active Substance: TROSPIUM CHLORIDE
     Dosage: UNK UKN, UNK
  2. RAMIPRIL. [Concomitant]
     Active Substance: RAMIPRIL
  3. LASIX [Concomitant]
     Active Substance: FUROSEMIDE
     Route: 048
  4. MACROGOL 3350 W/POTASSIUM CHLORIDE [Concomitant]
  5. ACETYLSALICYLIC ACID [Concomitant]
     Active Substance: ASPIRIN
  6. NOVORAPID [Suspect]
     Active Substance: INSULIN ASPART
     Indication: DIABETES MELLITUS
     Dosage: 72 DF, QD
     Route: 058
     Dates: start: 20140909, end: 20140914
  7. LEVEMIR [Suspect]
     Active Substance: INSULIN DETEMIR
     Indication: DIABETES MELLITUS
     Dosage: 24 DF, QD
     Route: 058
     Dates: start: 20140909, end: 20140914
  8. DICLOFENAC [Concomitant]
     Active Substance: DICLOFENAC
  9. METFORMIN [Suspect]
     Active Substance: METFORMIN HYDROCHLORIDE
     Indication: DIABETES MELLITUS
     Dosage: 3 G, QD
     Route: 048
     Dates: start: 20140909, end: 20140914
  10. MESOGLYCAN SODIUM [Concomitant]
  11. OMNIC [Concomitant]
     Active Substance: TAMSULOSIN HYDROCHLORIDE
     Dosage: UNK UKN, UNK

REACTIONS (2)
  - Hypoglycaemia [Recovered/Resolved]
  - Loss of consciousness [Recovered/Resolved]

NARRATIVE: CASE EVENT DATE: 20140914
